FAERS Safety Report 10257461 (Version 1)
Quarter: 2014Q2

REPORT INFORMATION
  Report Type: Spontaneous
  Country: US (occurrence: None)
  Receive Date: 20140623
  Receipt Date: 20140623
  Transmission Date: 20141212
  Serious: Yes (Other)
  Sender: FDA-Public Use
  Company Number: None

PATIENT
  Age: 49 Year
  Sex: Female
  Weight: 48.54 kg

DRUGS (1)
  1. EPI-PEN AUTOINJECTOR 0.3 MG [Suspect]
     Indication: ANAPHYLACTIC REACTION
     Dosage: 0.3MG, AS NEEDED, INTO THE MUSCLE?
     Dates: start: 20140606, end: 20140606

REACTIONS (6)
  - Injection site swelling [None]
  - Injection site pain [None]
  - Abasia [None]
  - Gait disturbance [None]
  - Discomfort [None]
  - Muscle spasms [None]
